FAERS Safety Report 5871831-6 (Version None)
Quarter: 2008Q3

REPORT INFORMATION
  Report Type: 
  Country: None (occurrence: None)
  Receive Date: 20080902
  Receipt Date: 20080819
  Transmission Date: 20090109
  Serious: No
  Sender: FDA-Public Use
  Company Number: 107#03#2008-04224

PATIENT
  Age: 58 Year
  Sex: Female

DRUGS (6)
  1. MIRTAZAPINE [Suspect]
     Indication: ANXIETY
     Dosage: 45 MG, ORAL
     Route: 048
     Dates: start: 19940101
  2. MIRTAZAPINE [Suspect]
     Indication: DEPRESSION
     Dosage: 45 MG, ORAL
     Route: 048
     Dates: start: 19940101
  3. ESCITALOPRAM [Concomitant]
     Indication: ANXIETY
     Dosage: 10 MG, ORAL
     Route: 048
  4. ESCITALOPRAM [Concomitant]
     Indication: BIPOLAR DISORDER
     Dosage: 10 MG, ORAL
     Route: 048
  5. DEPAKOTE [Suspect]
     Indication: BIPOLAR DISORDER
     Dosage: 1 G, ORAL
     Route: 048
     Dates: start: 20080108
  6. LITHIUM CARBONATE [Concomitant]

REACTIONS (2)
  - HEADACHE [None]
  - SUICIDAL IDEATION [None]
